FAERS Safety Report 5143431-7 (Version None)
Quarter: 2006Q4

REPORT INFORMATION
  Report Type: 
  Country: None (occurrence: None)
  Receive Date: 20061103
  Receipt Date: 20061025
  Transmission Date: 20070319
  Serious: Yes (Hospitalization, Other)
  Sender: FDA-Public Use
  Company Number: US-MERCK-0610USA13948

PATIENT
  Age: 60 Year
  Sex: Female

DRUGS (3)
  1. ZETIA [Suspect]
     Route: 048
  2. ZOCOR [Concomitant]
     Route: 048
  3. [THERAPY UNSPECIFIED] [Concomitant]
     Route: 065

REACTIONS (1)
  - NERVOUS SYSTEM DISORDER [None]
